FAERS Safety Report 4578364-8 (Version None)
Quarter: 2005Q1

REPORT INFORMATION
  Report Type: 
  Country: None (occurrence: None)
  Receive Date: 20050202
  Receipt Date: 20050202
  Transmission Date: 20050727
  Serious: Yes (Hospitalization)
  Sender: FDA-Public Use
  Company Number: None

PATIENT
  Age: 48 Year
  Sex: Female
  Weight: 73.4827 kg

DRUGS (4)
  1. WELLBUTRIN [Suspect]
  2. DEPAKOTE [Concomitant]
  3. ATENOLOL [Concomitant]
  4. VITAMINS [Concomitant]

REACTIONS (2)
  - CHEST PAIN [None]
  - PALPITATIONS [None]
